FAERS Safety Report 8008057-6 (Version None)
Quarter: 2011Q4

REPORT INFORMATION
  Report Type: 
  Country: None (occurrence: None)
  Receive Date: 20111227
  Receipt Date: 20111213
  Transmission Date: 20120403
  Serious: Yes (Other)
  Sender: FDA-Public Use
  Company Number: PHEH2011US07107

PATIENT
  Sex: Female

DRUGS (6)
  1. GLEEVEC [Suspect]
     Indication: CHRONIC MYELOID LEUKAEMIA
     Dosage: 400 MG, DAILY
     Route: 048
     Dates: start: 20101005
  2. CELEXA [Concomitant]
     Dosage: UNK
  3. MULTI-VITAMINS [Concomitant]
     Dosage: UNK
     Route: 048
  4. IRON [Concomitant]
     Dosage: UNK
  5. AMBIEN [Concomitant]
     Dosage: UNK UKN, UNK
  6. NEXIUM [Concomitant]
     Dosage: UNK

REACTIONS (7)
  - MENISCUS LESION [None]
  - NAUSEA [None]
  - BONE MARROW RETICULIN FIBROSIS [None]
  - HEADACHE [None]
  - JOINT EFFUSION [None]
  - LEUKOCYTOSIS [None]
  - THROMBOCYTOSIS [None]
